FAERS Safety Report 13185261 (Version 2)
Quarter: 2017Q1

REPORT INFORMATION
  Report Type: Report from Study
  Country: CA (occurrence: CA)
  Receive Date: 20170203
  Receipt Date: 20170301
  Transmission Date: 20170428
  Serious: Yes (Hospitalization)
  Sender: FDA-Public Use
  Company Number: PHHO2012CA021218

PATIENT
  Age: 68 Year
  Sex: Female
  Weight: 88.9 kg

DRUGS (2)
  1. OFATUMUMAB [Suspect]
     Active Substance: OFATUMUMAB
     Indication: NON-HODGKIN^S LYMPHOMA
     Dosage: 1000 MG
     Route: 042
     Dates: start: 20110830
  2. BENDAMUSTINE [Suspect]
     Active Substance: BENDAMUSTINE
     Indication: NON-HODGKIN^S LYMPHOMA
     Dosage: 90 MG/M2
     Route: 042
     Dates: start: 20110831

REACTIONS (1)
  - Lung infection [Recovered/Resolved]

NARRATIVE: CASE EVENT DATE: 20120216
